FAERS Safety Report 12911124 (Version 1)
Quarter: 2016Q4

REPORT INFORMATION
  Report Type: Spontaneous
  Country: US (occurrence: US)
  Receive Date: 20161104
  Receipt Date: 20161104
  Transmission Date: 20170207
  Serious: Yes (Other)
  Sender: FDA-Public Use
  Company Number: None

PATIENT
  Age: 16 Year
  Sex: Female
  Weight: 45.4 kg

DRUGS (2)
  1. FLUORESCEIN SODIUM + PROPARACAINE HYDROCHLORIDE ALTAIRE PHARMCEUTICALS, INC. [Suspect]
     Active Substance: FLUORESCEIN SODIUM\PROPARACAINE HYDROCHLORIDE
     Indication: INVESTIGATION
     Dosage: 1X EACH EYE AT DR^S OFFICE    DROPS IN EYES
     Route: 047
     Dates: end: 20160930
  2. FLUORESCEIN SODIUM + PROPARACAINE HYDROCHLORIDE ALTAIRE PHARMCEUTICALS, INC. [Suspect]
     Active Substance: FLUORESCEIN SODIUM\PROPARACAINE HYDROCHLORIDE
     Indication: GLAUCOMA
     Dosage: 1X EACH EYE AT DR^S OFFICE    DROPS IN EYES
     Route: 047
     Dates: end: 20160930

REACTIONS (4)
  - Deafness transitory [None]
  - Blindness transient [None]
  - Nausea [None]
  - Hyperhidrosis [None]

NARRATIVE: CASE EVENT DATE: 20160930
